FAERS Safety Report 14249270 (Version 2)
Quarter: 2018Q1

REPORT INFORMATION
  Report Type: Spontaneous
  Country: JP (occurrence: JP)
  Receive Date: 20171204
  Receipt Date: 20180321
  Transmission Date: 20180508
  Serious: Yes (Hospitalization, Other)
  Sender: FDA-Public Use
  Company Number: JP-BRISTOL-MYERS SQUIBB COMPANY-BMS-2017-109419

PATIENT
  Age: 50 Year
  Sex: Male

DRUGS (1)
  1. OPDIVO [Suspect]
     Active Substance: NIVOLUMAB
     Indication: NON-SMALL CELL LUNG CANCER
     Dosage: UNK UNK, Q3MO
     Route: 041
     Dates: start: 201512

REACTIONS (8)
  - Off label use [Unknown]
  - Pneumothorax [Unknown]
  - Infusion related reaction [Unknown]
  - Rheumatoid arthritis [Unknown]
  - Dermatitis [Unknown]
  - Condition aggravated [Unknown]
  - Colitis [Unknown]
  - Haematuria [Unknown]

NARRATIVE: CASE EVENT DATE: 2017
